FAERS Safety Report 4394283-4 (Version None)
Quarter: 2004Q3

REPORT INFORMATION
  Report Type: 
  Country: None (occurrence: None)
  Receive Date: 20040706
  Receipt Date: 20040624
  Transmission Date: 20050211
  Serious: Yes (Death)
  Sender: FDA-Public Use
  Company Number: 0407-150

PATIENT
  Age: 49 Year
  Sex: Female

DRUGS (5)
  1. DUONEB [Suspect]
     Indication: CHRONIC RESPIRATORY FAILURE
     Dosage: 4 UNITS DAILY, NEB
     Dates: start: 20040402, end: 20040623
  2. FLOVENT [Concomitant]
  3. ALBUTEROL [Concomitant]
  4. PREDNISONE [Concomitant]
  5. FOSAMAX [Concomitant]

REACTIONS (2)
  - SUDDEN DEATH [None]
  - TACHYCARDIA [None]
